FAERS Safety Report 16815985 (Version 1)
Quarter: 2019Q3

REPORT INFORMATION
  Report Type: Spontaneous
  Country: US (occurrence: US)
  Receive Date: 20190725
  Receipt Date: 20190725
  Transmission Date: 20191005
  Serious: Yes (Other)
  Sender: FDA-Public Use
  Company Number: None

PATIENT
  Age: 53 Year
  Sex: Female
  Weight: 63.5 kg

DRUGS (3)
  1. CVS LUBRICANT EYE DROPS [Suspect]
     Active Substance: CARBOXYMETHYLCELLULOSE SODIUM
     Dates: start: 201810
  2. CVS NIGHTTIME DRY-EYE RELIEF [Suspect]
     Active Substance: MINERAL OIL\PETROLATUM
     Indication: SJOGREN^S SYNDROME
  3. CVS NIGHTTIME DRY-EYE RELIEF [Suspect]
     Active Substance: MINERAL OIL\PETROLATUM
     Indication: DRY EYE

REACTIONS (1)
  - Keratitis [None]

NARRATIVE: CASE EVENT DATE: 20181024
